FAERS Safety Report 25853207 (Version 1)
Quarter: 2025Q3

REPORT INFORMATION
  Report Type: Spontaneous
  Country: US (occurrence: US)
  Receive Date: 20250926
  Receipt Date: 20250926
  Transmission Date: 20251021
  Serious: No
  Sender: RIGEL PHARMACEUTICALS
  Company Number: US-RIGEL PHARMACEUTICALS, INC-20250600126

PATIENT
  Sex: Male
  Weight: 97.522 kg

DRUGS (7)
  1. REZLIDHIA [Suspect]
     Active Substance: OLUTASIDENIB
     Indication: Product used for unknown indication
     Dosage: 150 MG, BID
     Route: 048
     Dates: start: 20240221
  2. CANNABIDIOL\HERBALS [Concomitant]
     Active Substance: CANNABIDIOL\HERBALS
     Indication: Product used for unknown indication
  3. DEXAMETHASONE [Concomitant]
     Active Substance: DEXAMETHASONE
     Indication: Product used for unknown indication
  4. ESCITALOPRAM OXALATE [Concomitant]
     Active Substance: ESCITALOPRAM OXALATE
     Indication: Product used for unknown indication
  5. METOCLOPRAMIDE HYDROCHLORIDE [Concomitant]
     Active Substance: METOCLOPRAMIDE HYDROCHLORIDE
     Indication: Product used for unknown indication
  6. PANTOPRAZOLE [Concomitant]
     Active Substance: PANTOPRAZOLE
     Indication: Product used for unknown indication
  7. CHANCA PIEDRA [Concomitant]
     Indication: Product used for unknown indication

REACTIONS (1)
  - Seizure [Not Recovered/Not Resolved]
